FAERS Safety Report 22239092 (Version 1)
Quarter: 2023Q2

REPORT INFORMATION
  Report Type: Spontaneous
  Country: US (occurrence: None)
  Receive Date: 20230419
  Receipt Date: 20230419
  Transmission Date: 20230722
  Serious: No
  Sender: FDA-Public Use
  Company Number: None

PATIENT
  Age: 66 Year
  Sex: Female
  Weight: 92.99 kg

DRUGS (23)
  1. LENALIDOMIDE [Suspect]
     Active Substance: LENALIDOMIDE
     Indication: Plasmacytoma
     Dosage: FREQUENCY : DAILY;?
     Route: 048
  2. ACYCLOVIR [Concomitant]
  3. ALBUTEROL HFA [Concomitant]
  4. ASCORBIC ACID [Concomitant]
  5. ASPIRIN [Concomitant]
  6. DARZALEX [Concomitant]
  7. DECADRON [Concomitant]
  8. ELIQUIS [Concomitant]
     Active Substance: APIXABAN
  9. NORCO [Concomitant]
  10. IBUPROFEN [Concomitant]
     Active Substance: IBUPROFEN
  11. LEVETIRACETAM [Concomitant]
     Active Substance: LEVETIRACETAM
  12. LORATADINE [Concomitant]
  13. MACROBID [Concomitant]
     Active Substance: NITROFURANTOIN\NITROFURANTOIN MONOHYDRATE
  14. METOPROLOL [Concomitant]
     Active Substance: METOPROLOL
  15. OMEPRAZOLE [Concomitant]
  16. ONDANSETRON [Concomitant]
     Active Substance: ONDANSETRON
  17. POTASSIUM [Concomitant]
     Active Substance: POTASSIUM
  18. PRAVASTATIN [Concomitant]
     Active Substance: PRAVASTATIN
  19. QUINALPRIL [Concomitant]
  20. SERTRALINE [Concomitant]
     Active Substance: SERTRALINE HYDROCHLORIDE
  21. TRAMADOL [Concomitant]
     Active Substance: TRAMADOL
  22. VELCADE [Concomitant]
     Active Substance: BORTEZOMIB
  23. ZOMETA [Concomitant]
     Active Substance: ZOLEDRONIC ACID

REACTIONS (1)
  - Neutropenia [None]
